FAERS Safety Report 25850871 (Version 1)
Quarter: 2025Q3

REPORT INFORMATION
  Report Type: Report from Study
  Country: TH (occurrence: TH)
  Receive Date: 20250926
  Receipt Date: 20250926
  Transmission Date: 20251020
  Serious: Yes (Hospitalization)
  Sender: ALEXION PHARMACEUTICALS
  Company Number: TH-AstraZeneca-CH-00944624A

PATIENT
  Sex: Female

DRUGS (1)
  1. OSIMERTINIB [Suspect]
     Active Substance: OSIMERTINIB
     Indication: Non-small cell lung cancer
     Dosage: 80 MILLIGRAM, QD
     Dates: start: 20180531

REACTIONS (5)
  - Asthenia [Unknown]
  - Feeding disorder [Unknown]
  - Pneumonia [Unknown]
  - Dyspnoea [Unknown]
  - Fatigue [Unknown]
